FAERS Safety Report 8760797 (Version 4)
Quarter: 2013Q3

REPORT INFORMATION
  Report Type: Spontaneous
  Country: US (occurrence: US)
  Receive Date: 20120912
  Receipt Date: 20130710
  Transmission Date: 20140515
  Serious: Yes (Other)
  Sender: FDA-Public Use
  Company Number: US-009507513-1208USA008825

PATIENT
  Age: 28 Year
  Sex: Female
  Weight: 78.46 kg

DRUGS (1)
  1. IMPLANON [Suspect]
     Indication: CONTRACEPTION
     Dosage: 1 DF
     Route: 059
     Dates: start: 20120601

REACTIONS (7)
  - Abortion induced [Recovered/Resolved]
  - Unintended pregnancy [Recovered/Resolved]
  - Medical device complication [Unknown]
  - Device difficult to use [Unknown]
  - Product quality issue [Unknown]
  - Product quality issue [Unknown]
  - Drug dose omission [Unknown]
